FAERS Safety Report 6127186-5 (Version None)
Quarter: 2009Q1

REPORT INFORMATION
  Report Type: 
  Country: None (occurrence: None)
  Receive Date: 20090320
  Receipt Date: 20090306
  Transmission Date: 20090719
  Serious: Yes (Disabling)
  Sender: FDA-Public Use
  Company Number: JP-GENENTECH-279356

PATIENT
  Age: 44 Year
  Sex: Female

DRUGS (3)
  1. HERCEPTIN [Suspect]
     Indication: BREAST CANCER
     Dosage: UNK
     Route: 041
  2. DOXORUBICIN HCL [Suspect]
     Indication: BREAST CANCER
     Dosage: UNK
     Route: 042
  3. CYCLOPHOSPHAMIDE [Concomitant]
     Indication: CHEMOTHERAPY
     Dosage: UNK

REACTIONS (1)
  - ATRIOVENTRICULAR BLOCK COMPLETE [None]
